FAERS Safety Report 6164473-9 (Version None)
Quarter: 2009Q2

REPORT INFORMATION
  Report Type: 
  Country: None (occurrence: None)
  Receive Date: 20090421
  Receipt Date: 20090410
  Transmission Date: 20091009
  Serious: Yes (Other)
  Sender: FDA-Public Use
  Company Number: 20096565

PATIENT
  Sex: Female

DRUGS (1)
  1. LIORESAL [Suspect]
     Indication: MUSCLE SPASTICITY
     Dosage: DAILY, INTRATHECAL
     Route: 037

REACTIONS (7)
  - DEVICE CONNECTION ISSUE [None]
  - HEART RATE DECREASED [None]
  - IMPAIRED GASTRIC EMPTYING [None]
  - MUSCLE SPASTICITY [None]
  - PANCREATITIS [None]
  - RESPIRATORY DEPRESSION [None]
  - URINARY INCONTINENCE [None]
